FAERS Safety Report 7423419-3 (Version None)
Quarter: 2011Q2

REPORT INFORMATION
  Report Type: 
  Country: None (occurrence: None)
  Receive Date: 20110419
  Receipt Date: 20110407
  Transmission Date: 20111010
  Serious: Yes (Hospitalization, Other)
  Sender: FDA-Public Use
  Company Number: PHHY2010US84514

PATIENT
  Sex: Male
  Weight: 57.68 kg

DRUGS (14)
  1. NOVOLOG [Concomitant]
  2. EXJADE [Suspect]
     Indication: MYELODYSPLASTIC SYNDROME
     Dosage: 1250 MG DAILY
     Route: 048
     Dates: start: 20101124
  3. SULAR [Concomitant]
  4. LANTUS [Concomitant]
  5. DIGOXIN [Concomitant]
  6. COUMADIN [Concomitant]
  7. FLOMAX [Concomitant]
  8. LASIX [Concomitant]
  9. NEUPOGEN [Concomitant]
  10. REVATIO [Concomitant]
  11. EXJADE [Suspect]
     Indication: ANAEMIA HAEMOLYTIC AUTOIMMUNE
  12. ISOSORBIDE DINITRATE [Concomitant]
  13. DIURETICS [Concomitant]
  14. TOPROL-XL [Concomitant]

REACTIONS (8)
  - NAUSEA [None]
  - PULMONARY OEDEMA [None]
  - ABDOMINAL PAIN UPPER [None]
  - VOMITING [None]
  - UPPER RESPIRATORY TRACT INFECTION [None]
  - ANAEMIA [None]
  - DEHYDRATION [None]
  - DIARRHOEA [None]
